FAERS Safety Report 18663359 (Version 2)
Quarter: 2021Q1

REPORT INFORMATION
  Report Type: Report from Study
  Country: US (occurrence: US)
  Receive Date: 20201224
  Receipt Date: 20210107
  Transmission Date: 20210419
  Serious: Yes (Hospitalization)
  Sender: FDA-Public Use
  Company Number: US-ULTRAGENYX PHARMACEUTICAL INC.-US-UGNX-20-00252

PATIENT
  Age: 1 Month
  Sex: Male
  Weight: 5.7 kg

DRUGS (4)
  1. DOJOLVI [Suspect]
     Active Substance: TRIHEPTANOIN
  2. DOJOLVI [Suspect]
     Active Substance: TRIHEPTANOIN
     Indication: CARNITINE PALMITOYLTRANSFERASE DEFICIENCY
     Dates: start: 20201119
  3. DOJOLVI [Suspect]
     Active Substance: TRIHEPTANOIN
  4. DOJOLVI [Suspect]
     Active Substance: TRIHEPTANOIN

REACTIONS (1)
  - Vomiting [Recovered/Resolved]

NARRATIVE: CASE EVENT DATE: 20201129
